FAERS Safety Report 4725051-9 (Version None)
Quarter: 2005Q3

REPORT INFORMATION
  Report Type: 
  Country: None (occurrence: None)
  Receive Date: 20050726
  Receipt Date: 20050708
  Transmission Date: 20060218
  Serious: No
  Sender: FDA-Public Use
  Company Number: RO-BOEHRINGER INGELHEIM PHARMACEUTICALS, INC.-2005-DE-02903GL

PATIENT
  Sex: Male

DRUGS (4)
  1. TELMISARTAN [Suspect]
     Indication: HYPERTENSION
     Route: 048
     Dates: start: 20050404, end: 20050425
  2. CARVEDILOL [Concomitant]
  3. SIMVASTATIN [Concomitant]
  4. SPIRONOLACTONE [Concomitant]

REACTIONS (1)
  - VISUAL ACUITY REDUCED [None]
